FAERS Safety Report 8010155-8 (Version None)
Quarter: 2011Q4

REPORT INFORMATION
  Report Type: 
  Country: None (occurrence: None)
  Receive Date: 20111228
  Receipt Date: 20111216
  Transmission Date: 20120403
  Serious: Yes (Other)
  Sender: FDA-Public Use
  Company Number: US-UCBSA-040612

PATIENT
  Age: 31 Year
  Sex: Male
  Weight: 83 kg

DRUGS (4)
  1. ZOLOFT [Concomitant]
     Dates: start: 20040101
  2. A TO Z [Suspect]
     Dosage: DOSE: UNKNOWN
  3. ZOLOFT [Concomitant]
     Indication: MAJOR DEPRESSION
     Dates: start: 20030101
  4. KEPPRA XR [Suspect]
     Indication: CONVULSION
     Dosage: 750 MG DAILY
     Route: 048
     Dates: start: 20000101

REACTIONS (5)
  - DEPRESSION [None]
  - FATIGUE [None]
  - ANXIETY [None]
  - DRUG HYPERSENSITIVITY [None]
  - SLEEP APNOEA SYNDROME [None]
